FAERS Safety Report 15662867 (Version 1)
Quarter: 2018Q4

REPORT INFORMATION
  Report Type: Spontaneous
  Country: US (occurrence: US)
  Receive Date: 20181127
  Receipt Date: 20181127
  Transmission Date: 20190205
  Serious: Yes (Other)
  Sender: FDA-Public Use
  Company Number: US-SA-2018SA193490

PATIENT
  Age: 54 Year
  Sex: Female

DRUGS (1)
  1. TOUJEO [Suspect]
     Active Substance: INSULIN GLARGINE
     Dosage: 65 IU, QD
     Dates: start: 201804

REACTIONS (2)
  - Injection site bruising [Unknown]
  - Product dose omission [Unknown]
